FAERS Safety Report 11863226 (Version 1)
Quarter: 2015Q4

REPORT INFORMATION
  Report Type: Spontaneous
  Country: US (occurrence: US)
  Receive Date: 20151223
  Receipt Date: 20151223
  Transmission Date: 20160305
  Serious: No
  Sender: FDA-Public Use
  Company Number: US-BAYER-2015-494398

PATIENT
  Age: 74 Year
  Sex: Male
  Weight: 52.15 kg

DRUGS (1)
  1. MIRALAX [Suspect]
     Active Substance: POLYETHYLENE GLYCOL 3350
     Dosage: 2 DF, UNK
     Dates: start: 20151221

REACTIONS (3)
  - Tinnitus [None]
  - Product use issue [None]
  - Nausea [None]

NARRATIVE: CASE EVENT DATE: 20151221
